FAERS Safety Report 5629279-5 (Version None)
Quarter: 2008Q1

REPORT INFORMATION
  Report Type: 
  Country: None (occurrence: None)
  Receive Date: 20080217
  Receipt Date: 20080211
  Transmission Date: 20080703
  Serious: No
  Sender: FDA-Public Use
  Company Number: US-BAXTER-2008BH001206

PATIENT
  Age: 30 Year
  Sex: Female
  Weight: 68 kg

DRUGS (4)
  1. HEPARIN SODIUM [Suspect]
     Indication: DEEP VEIN THROMBOSIS
     Route: 065
     Dates: start: 20080101, end: 20080209
  2. HEPARIN SODIUM [Suspect]
     Route: 065
     Dates: start: 20080101, end: 20080209
  3. PRENATAL VITAMINS [Concomitant]
     Indication: PREGNANCY
     Dosage: DOSE UNIT:UNKNOWN
     Route: 065
  4. LOVENOX [Concomitant]
     Indication: DEEP VEIN THROMBOSIS
     Route: 065

REACTIONS (5)
  - FATIGUE [None]
  - HEADACHE [None]
  - PYREXIA [None]
  - RASH [None]
  - SOMNOLENCE [None]
